FAERS Safety Report 23415718 (Version 2)
Quarter: 2024Q1

REPORT INFORMATION
  Report Type: Report from Study
  Country: MX (occurrence: MX)
  Receive Date: 20240118
  Receipt Date: 20240131
  Transmission Date: 20240410
  Serious: Yes (Other)
  Sender: FDA-Public Use
  Company Number: MX-002147023-NVSC2024MX009667

PATIENT
  Age: 23 Year
  Sex: Male
  Weight: 78 kg

DRUGS (10)
  1. COSENTYX [Suspect]
     Active Substance: SECUKINUMAB
     Indication: Ankylosing spondylitis
     Dosage: 2 DOSAGE FORM, QW
     Route: 058
     Dates: start: 20231218
  2. COSENTYX [Suspect]
     Active Substance: SECUKINUMAB
     Dosage: 300 MG, QW
     Route: 058
  3. AZULFIDINE [Concomitant]
     Active Substance: SULFASALAZINE
     Indication: Arthritis
     Dosage: 2 DOSAGE FORM, TID (BY MOUTH) (STARTED APPROXIMATELY 1 YEAR AGO)
     Route: 048
  4. AZULFIDINE [Concomitant]
     Active Substance: SULFASALAZINE
     Indication: Analgesic therapy
     Dosage: 2 DOSAGE FORM, TID, (500 MG)
     Route: 048
     Dates: start: 202206
  5. AZULFIDINE [Concomitant]
     Active Substance: SULFASALAZINE
     Indication: Ankylosing spondylitis
  6. LYRICA [Concomitant]
     Active Substance: PREGABALIN
     Indication: Neuralgia
     Dosage: 2 DOSAGE FORM, BID (BY MOUTH) (STARTED APPROXIMATELY A YEAR AND A HALF AGO)
     Route: 048
  7. LYRICA [Concomitant]
     Active Substance: PREGABALIN
     Indication: Back pain
     Dosage: 2 DOSAGE FORM, BID, (75 MG, MORNING AND NIGHT)
     Route: 048
     Dates: start: 202206
  8. LYRICA [Concomitant]
     Active Substance: PREGABALIN
     Indication: Ankylosing spondylitis
  9. AMITRIPTYLINE HYDROCHLORIDE [Concomitant]
     Active Substance: AMITRIPTYLINE HYDROCHLORIDE
     Indication: Antidepressant therapy
     Dosage: 1 DOSAGE FORM, QD (BY MOUTH) (STARTED APPROXIMATELY 3 MONTHS AGO)
     Route: 048
  10. AMITRIPTYLINE HYDROCHLORIDE [Concomitant]
     Active Substance: AMITRIPTYLINE HYDROCHLORIDE
     Indication: Depression
     Dosage: 1 DOSAGE FORM, QD, (25 MG, AT NIGHT)
     Route: 048
     Dates: start: 202206

REACTIONS (3)
  - Abdominal pain upper [Not Recovered/Not Resolved]
  - Pain [Unknown]
  - Gastritis [Not Recovered/Not Resolved]

NARRATIVE: CASE EVENT DATE: 20240101
